FAERS Safety Report 22132806 (Version 2)
Quarter: 2023Q2

REPORT INFORMATION
  Report Type: Spontaneous
  Country: US (occurrence: US)
  Receive Date: 20230323
  Receipt Date: 20230601
  Transmission Date: 20230722
  Serious: No
  Sender: FDA-Public Use
  Company Number: US-ALLERGAN-2300633US

PATIENT
  Age: 64 Year
  Sex: Female
  Weight: 68.027 kg

DRUGS (1)
  1. LINZESS [Suspect]
     Active Substance: LINACLOTIDE
     Indication: Irritable bowel syndrome
     Dosage: 145 ?G

REACTIONS (2)
  - Wrong technique in product usage process [Unknown]
  - Diarrhoea [Recovered/Resolved]
